FAERS Safety Report 25396671 (Version 1)
Quarter: 2025Q2

REPORT INFORMATION
  Report Type: Spontaneous
  Country: US (occurrence: None)
  Receive Date: 20250604
  Receipt Date: 20250604
  Transmission Date: 20250716
  Serious: Yes (Life-Threatening)
  Sender: FDA-CTU
  Company Number: None

PATIENT
  Age: 72 Year
  Sex: Female
  Weight: 98.1 kg

DRUGS (3)
  1. TENECTEPLASE [Suspect]
     Active Substance: TENECTEPLASE
     Indication: Ischaemic stroke
     Route: 040
  2. Morphine 2 mg IV once [Concomitant]
     Dates: start: 20250603, end: 20250603
  3. Iohexol 100 ml (350 mg/ml) [Concomitant]
     Dates: start: 20250603, end: 20250603

REACTIONS (1)
  - Angioedema [None]

NARRATIVE: CASE EVENT DATE: 20250603
